FAERS Safety Report 21657710 (Version 1)
Quarter: 2022Q4

REPORT INFORMATION
  Report Type: Spontaneous
  Country: US (occurrence: None)
  Receive Date: 20221128
  Receipt Date: 20221128
  Transmission Date: 20230113
  Serious: Yes (Life-Threatening, Hospitalization, Other)
  Sender: FDA-Public Use
  Company Number: None

PATIENT
  Age: 47 Year
  Sex: Female
  Weight: 105.75 kg

DRUGS (15)
  1. OMECLAMOX-PAK [Suspect]
     Active Substance: AMOXICILLIN\CLARITHROMYCIN\OMEPRAZOLE
     Indication: Abdominal infection
     Dosage: OTHER QUANTITY : 4 CAPSULE(S);?FREQUENCY : TWICE A DAY;?
     Route: 048
     Dates: start: 20221115, end: 20221115
  2. CARVEDILOL [Concomitant]
     Active Substance: CARVEDILOL
  3. TOPIRAMATE [Concomitant]
     Active Substance: TOPIRAMATE
  4. LYRICA [Concomitant]
     Active Substance: PREGABALIN
  5. ADDERALL [Concomitant]
     Active Substance: AMPHETAMINE ASPARTATE\AMPHETAMINE SULFATE\DEXTROAMPHETAMINE SACCHARATE\DEXTROAMPHETAMINE SULFATE
  6. ZOFRAN [Concomitant]
     Active Substance: ONDANSETRON HYDROCHLORIDE
  7. VITAMIN D [Concomitant]
     Active Substance: VITAMIN D NOS
  8. RIZATRIPTAN [Concomitant]
     Active Substance: RIZATRIPTAN
  9. CELEBREX [Concomitant]
     Active Substance: CELECOXIB
  10. protonox [Concomitant]
  11. FLAGYL [Concomitant]
     Active Substance: METRONIDAZOLE\METRONIDAZOLE HYDROCHLORIDE
  12. LEVAQUIN [Concomitant]
     Active Substance: LEVOFLOXACIN
  13. CELLCEPT [Concomitant]
     Active Substance: MYCOPHENOLATE MOFETIL
  14. Sapnelo [Concomitant]
  15. IRON [Concomitant]
     Active Substance: IRON

REACTIONS (6)
  - Lethargy [None]
  - Sluggishness [None]
  - Somnolence [None]
  - Hypoaesthesia [None]
  - Dyspnoea [None]
  - Loss of consciousness [None]

NARRATIVE: CASE EVENT DATE: 20221115
